FAERS Safety Report 14617546 (Version 1)
Quarter: 2018Q1

REPORT INFORMATION
  Report Type: Spontaneous
  Country: FR (occurrence: FR)
  Receive Date: 20180309
  Receipt Date: 20180309
  Transmission Date: 20180509
  Serious: Yes (Other)
  Sender: FDA-Public Use
  Company Number: FR-MERCK KGAA-2043420

PATIENT
  Weight: 96 kg

DRUGS (1)
  1. NOVOTHYROX [Suspect]
     Active Substance: LEVOTHYROXINE SODIUM
     Route: 048
     Dates: start: 20170701, end: 20171101

REACTIONS (9)
  - Poor quality sleep [Recovered/Resolved]
  - Hypertension [Unknown]
  - Myalgia [Recovering/Resolving]
  - Memory impairment [Unknown]
  - Arthralgia [Recovering/Resolving]
  - Vertigo [Recovered/Resolved]
  - Formication [Recovered/Resolved]
  - Fatigue [Recovering/Resolving]
  - Headache [Recovered/Resolved]

NARRATIVE: CASE EVENT DATE: 20170921
